FAERS Safety Report 8687561 (Version 2)
Quarter: 2012Q4

REPORT INFORMATION
  Report Type: 
  Country: US (occurrence: US)
  Receive Date: 20120727
  Receipt Date: 20121008
  Transmission Date: 20130627
  Serious: No
  Sender: FDA-Public Use
  Company Number: US-PFIZER INC-2012178772

PATIENT
  Age: 53 Year
  Sex: Female

DRUGS (5)
  1. EFFEXOR XR [Suspect]
     Dosage: UNK
  2. LIPITOR [Suspect]
     Dosage: UNK
  3. ZOLOFT [Suspect]
     Dosage: UNK
  4. VENLAFAXINE HYDROCHLORIDE [Suspect]
     Dosage: 75 mg, 1x/day
     Route: 048
  5. VENLAFAXINE HYDROCHLORIDE [Suspect]
     Dosage: 150 mg, 1x/day
     Route: 048

REACTIONS (1)
  - Impaired work ability [Unknown]
